FAERS Safety Report 5144482-9 (Version None)
Quarter: 2006Q4

REPORT INFORMATION
  Report Type: 
  Country: None (occurrence: None)
  Receive Date: 20061106
  Receipt Date: 20040116
  Transmission Date: 20070319
  Serious: Yes (Death)
  Sender: FDA-Public Use
  Company Number: GR-ROXANE LABORATORIES, INC-2004-DE-00309GD

PATIENT

DRUGS (2)
  1. PREDNISONE TAB [Suspect]
     Indication: IDIOPATHIC PULMONARY FIBROSIS
     Route: 048
  2. COLCHICINE [Suspect]
     Indication: IDIOPATHIC PULMONARY FIBROSIS
     Route: 048

REACTIONS (1)
  - DEATH [None]
